FAERS Safety Report 16527562 (Version 1)
Quarter: 2019Q3

REPORT INFORMATION
  Report Type: Spontaneous
  Country: US (occurrence: US)
  Receive Date: 20190703
  Receipt Date: 20190703
  Transmission Date: 20191004
  Serious: No
  Sender: FDA-Public Use
  Company Number: US-AVEDRO-AVE-2019-0160-AE

PATIENT
  Sex: Female

DRUGS (1)
  1. PHOTREXA [Suspect]
     Active Substance: RIBOFLAVIN 5^-PHOSPHATE SODIUM
     Indication: KERATOCONUS
     Dosage: INDUCTION PERIOD
     Route: 047
     Dates: start: 20190520, end: 20190520

REACTIONS (4)
  - Incorrect product formulation administered [Unknown]
  - Product appearance confusion [Unknown]
  - No adverse event [Unknown]
  - Product packaging confusion [Unknown]

NARRATIVE: CASE EVENT DATE: 20190520
